FAERS Safety Report 12378899 (Version 1)
Quarter: 2016Q2

REPORT INFORMATION
  Report Type: Spontaneous
  Country: DK (occurrence: TR)
  Receive Date: 20160517
  Receipt Date: 20160517
  Transmission Date: 20160815
  Serious: Yes (Other)
  Sender: FDA-Public Use
  Company Number: TR-FRI-1000084335

PATIENT
  Age: 34 Year
  Sex: Male

DRUGS (5)
  1. ESCITALOPRAM [Suspect]
     Active Substance: ESCITALOPRAM OXALATE
     Indication: DEPRESSION
     Route: 048
     Dates: start: 2015
  2. ESCITALOPRAM [Suspect]
     Active Substance: ESCITALOPRAM OXALATE
     Indication: ANXIETY
     Route: 065
  3. ESCITALOPRAM [Suspect]
     Active Substance: ESCITALOPRAM OXALATE
     Indication: PANIC ATTACK
     Route: 048
     Dates: start: 2008
  4. DEPAKIN [Concomitant]
     Active Substance: VALPROATE SODIUM
     Indication: ANXIETY
     Route: 065
  5. DEPAKIN [Concomitant]
     Active Substance: VALPROATE SODIUM
     Indication: PANIC ATTACK

REACTIONS (7)
  - Hypoaesthesia [Unknown]
  - Arrhythmia [Unknown]
  - Chest discomfort [Unknown]
  - Panic attack [Unknown]
  - Angina pectoris [Unknown]
  - Dizziness [Unknown]
  - Nightmare [Unknown]

NARRATIVE: CASE EVENT DATE: 2013
